FAERS Safety Report 6049040-X (Version None)
Quarter: 2009Q1

REPORT INFORMATION
  Report Type: 
  Country: None (occurrence: None)
  Receive Date: 20090123
  Receipt Date: 20090116
  Transmission Date: 20090719
  Serious: Yes (Death, Hospitalization)
  Sender: FDA-Public Use
  Company Number: US-BAXTER-2009BH001001

PATIENT
  Age: 54 Year
  Sex: Female

DRUGS (13)
  1. CYCLOPHOSPHAMIDE [Suspect]
     Indication: BREAST CANCER
     Route: 042
     Dates: start: 20081120, end: 20081120
  2. TAXOTERE [Suspect]
     Indication: BREAST CANCER
     Route: 042
     Dates: start: 20081120, end: 20081120
  3. DOXORUBICIN HCL [Suspect]
     Indication: BREAST CANCER
     Route: 042
     Dates: start: 20081120, end: 20081120
  4. DOXORUBICIN HCL [Suspect]
     Route: 042
     Dates: start: 20081120, end: 20081120
  5. NAUSEA MEDICATION [Concomitant]
     Indication: NAUSEA
     Route: 065
     Dates: start: 20081101
  6. COLESTIPOL HYDROCHLORIDE [Concomitant]
     Indication: DRUG USE FOR UNKNOWN INDICATION
     Route: 065
     Dates: start: 20081101
  7. METOPROLOL TARTRATE [Concomitant]
     Indication: DRUG USE FOR UNKNOWN INDICATION
     Route: 065
     Dates: start: 20081101
  8. POTASSIUM CHLORIDE [Concomitant]
     Indication: DRUG USE FOR UNKNOWN INDICATION
     Route: 065
     Dates: start: 20081101
  9. RANITIDINE [Concomitant]
     Indication: DRUG USE FOR UNKNOWN INDICATION
     Route: 065
     Dates: start: 20081101
  10. NAPROXEN [Concomitant]
     Indication: DRUG USE FOR UNKNOWN INDICATION
     Route: 065
     Dates: start: 20081101
  11. DOCUSATE SODIUM [Concomitant]
     Indication: DRUG USE FOR UNKNOWN INDICATION
     Route: 065
     Dates: start: 20081101
  12. ASPIRIN [Concomitant]
     Indication: DRUG USE FOR UNKNOWN INDICATION
     Route: 065
     Dates: start: 20081101
  13. LORATADINE [Concomitant]
     Indication: DRUG USE FOR UNKNOWN INDICATION
     Route: 065
     Dates: start: 20081101

REACTIONS (9)
  - ASTHENIA [None]
  - CAECITIS [None]
  - COLITIS [None]
  - DEHYDRATION [None]
  - HEART RATE INCREASED [None]
  - INTESTINAL OBSTRUCTION [None]
  - LEUKOPENIA [None]
  - NAUSEA [None]
  - VOMITING [None]
